FAERS Safety Report 10138818 (Version 1)
Quarter: 2014Q2

REPORT INFORMATION
  Report Type: Spontaneous
  Country: US (occurrence: US)
  Receive Date: 20140429
  Receipt Date: 20140429
  Transmission Date: 20141212
  Serious: No
  Sender: FDA-Public Use
  Company Number: US-PFIZER INC-2014116316

PATIENT
  Sex: Male

DRUGS (1)
  1. TESTOSTERONE CIPIONATE [Suspect]
     Indication: BLOOD TESTOSTERONE DECREASED
     Dosage: EVERY 2 WEEKS

REACTIONS (2)
  - Weight increased [Unknown]
  - Headache [Unknown]
